FAERS Safety Report 7427156-0 (Version None)
Quarter: 2011Q2

REPORT INFORMATION
  Report Type: 
  Country: None (occurrence: None)
  Receive Date: 20110420
  Receipt Date: 20110411
  Transmission Date: 20111010
  Serious: Yes (Life-Threatening, Hospitalization, Disabling, Other)
  Sender: FDA-Public Use
  Company Number: IE-PFIZER INC-2010139329

PATIENT
  Age: 57 Year
  Sex: Female

DRUGS (10)
  1. TOVIAZ [Suspect]
     Indication: HYPERTONIC BLADDER
     Dosage: 4 MG, UNK
     Route: 048
  2. FRUSEMIDE [Concomitant]
     Dosage: 60 MG, 2X/DAY
  3. ZOTON [Concomitant]
     Dosage: 30 MG, UNK
  4. FOSAMAX [Concomitant]
     Dosage: 70 MG, WEEKLY
  5. RAMIPRIL [Concomitant]
     Dosage: 10 MG, 1X/DAY
  6. ATORVASTATIN [Concomitant]
     Dosage: 20 MG, 1X/DAY
  7. RAMIPRIL [Concomitant]
     Dosage: 5 MG, 1X/DAY
  8. PREDNISOLONE [Concomitant]
     Dosage: 60 MG, UNK
  9. ACETYLSALICYLIC ACID [Concomitant]
     Dosage: 75 MG, UNK
  10. CALCICHEW-D3 [Concomitant]
     Dosage: UNK

REACTIONS (17)
  - IGA NEPHROPATHY [None]
  - NORMOCHROMIC NORMOCYTIC ANAEMIA [None]
  - HEADACHE [None]
  - HEPATOMEGALY [None]
  - LYMPHADENOPATHY [None]
  - MUSCLE SPASMS [None]
  - NEPHROTIC SYNDROME [None]
  - LETHARGY [None]
  - ANTINUCLEAR ANTIBODY POSITIVE [None]
  - PULMONARY SARCOIDOSIS [None]
  - MOUTH ULCERATION [None]
  - LYMPHOMA [None]
  - DYSLIPIDAEMIA [None]
  - ASTHENIA [None]
  - GINGIVAL PAIN [None]
  - HYPERTENSION [None]
  - DYSPNOEA [None]
